FAERS Safety Report 8007302-0 (Version None)
Quarter: 2011Q4

REPORT INFORMATION
  Report Type: 
  Country: None (occurrence: None)
  Receive Date: 20111227
  Receipt Date: 20111216
  Transmission Date: 20120403
  Serious: Yes (Hospitalization)
  Sender: FDA-Public Use
  Company Number: FR-ASTELLAS-2011EU009371

PATIENT
  Sex: Female

DRUGS (18)
  1. VITAMIN B COMPLEX TAB [Concomitant]
     Dosage: 1 DF, UNKNOWN/D
     Route: 065
  2. PRAVASTATIN [Concomitant]
     Dosage: 1 DF, UNKNOWN/D
     Route: 065
  3. PENTACARINAT [Concomitant]
     Dosage: UNK
     Route: 065
  4. PROGRAF [Suspect]
     Dosage: 2 MG, UNKNOWN/D
     Route: 048
     Dates: start: 20110810
  5. PREDNISONE TAB [Concomitant]
     Dosage: 15 MG, UNKNOWN/D
     Route: 065
  6. FERROUS SULFATE TAB [Concomitant]
     Dosage: 1 DF, BID
     Route: 065
  7. AMLODIPINE BESYLATE [Concomitant]
     Dosage: 1 DF, UNKNOWN/D
     Route: 065
  8. VALGANCICLOVIR [Concomitant]
     Dosage: 1 DF, UNKNOWN/D
     Route: 065
  9. ASPIRIN [Concomitant]
     Dosage: 1 DF, UNKNOWN/D
     Route: 065
  10. NEXIUM [Concomitant]
     Dosage: 1 DF, UNKNOWN/D
     Route: 065
  11. ARANESP [Concomitant]
     Dosage: 50 UG, WEEKLY
     Route: 065
  12. PROGRAF [Suspect]
     Dosage: UNK
     Route: 048
  13. PROGRAF [Suspect]
     Dosage: 2.5 MG, UNKNOWN/D
     Route: 048
     Dates: start: 20110809
  14. REPAGLINIDE [Concomitant]
     Dosage: 1 MG, UNKNOWN/D
     Route: 065
  15. MYCOPHENOLATE MOFETIL (CELLCEPT) [Concomitant]
     Dosage: 1 DF, BID
     Route: 065
  16. NITROGLYCERIN [Concomitant]
     Dosage: 1 DF, UNKNOWN/D
     Route: 065
  17. PLAVIX [Concomitant]
     Dosage: 1 DF, UNKNOWN/D
     Route: 065
  18. SECTRAL [Concomitant]
     Dosage: 1 DF, BID
     Route: 065

REACTIONS (2)
  - RENAL FAILURE ACUTE [None]
  - ACCIDENTAL OVERDOSE [None]
